FAERS Safety Report 9998924 (Version 2)
Quarter: 2014Q1

REPORT INFORMATION
  Report Type: Report from Study
  Country: US (occurrence: US)
  Receive Date: 20140312
  Receipt Date: 20140325
  Transmission Date: 20141002
  Serious: Yes (Other)
  Sender: FDA-Public Use
  Company Number: US-ALEXION-A201400668

PATIENT
  Sex: 0

DRUGS (10)
  1. SOLIRIS [Suspect]
     Indication: PAROXYSMAL NOCTURNAL HAEMOGLOBINURIA
     Dosage: 900 MG, Q2W
     Route: 042
     Dates: start: 20120612
  2. PREDNISONE [Concomitant]
     Indication: STEROID THERAPY
     Dosage: 35 MG, UNK
     Route: 048
     Dates: start: 20040101
  3. AMBROTOSE [Concomitant]
     Indication: PROBIOTIC THERAPY
     Dosage: UNK, QD
     Dates: start: 20120426
  4. CALCIUM [Concomitant]
     Indication: PRODUCT USED FOR UNKNOWN INDICATION
     Dosage: 500 MG, TID
     Route: 048
     Dates: start: 20120426
  5. FISH OIL [Concomitant]
     Indication: PRODUCT USED FOR UNKNOWN INDICATION
     Dosage: 1000 MG, QD
     Route: 048
     Dates: start: 20120426
  6. FOLIC ACID [Concomitant]
     Indication: PRODUCT USED FOR UNKNOWN INDICATION
     Dosage: 1 MG, UNK
     Route: 048
     Dates: start: 20120426
  7. GLUCOSAMINE COMPLEX                /01555401/ [Concomitant]
     Indication: PRODUCT USED FOR UNKNOWN INDICATION
     Dosage: 1 DF, TID
     Route: 048
     Dates: start: 20120426
  8. MILK OF MAGNESIUM [Concomitant]
     Indication: LAXATIVE SUPPORTIVE CARE
     Dosage: UNK. PRN
     Dates: start: 20120426
  9. MULTIVITAMINS [Concomitant]
     Indication: PRODUCT USED FOR UNKNOWN INDICATION
     Dosage: 1 DF, QD
     Route: 048
     Dates: start: 20120426
  10. TYLENOL                            /00020001/ [Concomitant]
     Indication: PAIN
     Dosage: 325 UNK, UNK
     Route: 048

REACTIONS (2)
  - Spinal fracture [Not Recovered/Not Resolved]
  - Back pain [Unknown]
